FAERS Safety Report 7348068-7 (Version None)
Quarter: 2011Q1

REPORT INFORMATION
  Report Type: 
  Country: None (occurrence: None)
  Receive Date: 20110311
  Receipt Date: 20110308
  Transmission Date: 20110831
  Serious: Yes (Hospitalization)
  Sender: FDA-Public Use
  Company Number: US-ABBOTT-11P-163-0709834-00

PATIENT
  Sex: Male
  Weight: 94.886 kg

DRUGS (4)
  1. HUMIRA [Suspect]
     Indication: PSORIATIC ARTHROPATHY
  2. HUMIRA [Suspect]
     Indication: RHEUMATOID ARTHRITIS
  3. HUMIRA [Suspect]
     Indication: PSORIASIS
     Dates: start: 20090101
  4. HUMIRA [Suspect]
     Indication: OSTEOARTHRITIS

REACTIONS (2)
  - SKIN FISSURES [None]
  - DRUG INEFFECTIVE [None]
